FAERS Safety Report 15398429 (Version 7)
Quarter: 2019Q2

REPORT INFORMATION
  Report Type: Report from Study
  Country: US (occurrence: US)
  Receive Date: 20180918
  Receipt Date: 20190604
  Transmission Date: 20190711
  Serious: Yes (Hospitalization)
  Sender: FDA-Public Use
  Company Number: US-ACTELION-A-US2017-156112

PATIENT
  Age: 34 Year
  Sex: Female
  Weight: 108.84 kg

DRUGS (14)
  1. VELETRI [Suspect]
     Active Substance: EPOPROSTENOL
     Dosage: 18.08 NG/KG, PER MIN
     Route: 042
  2. VELETRI [Suspect]
     Active Substance: EPOPROSTENOL
     Dosage: 4.1 NG/KG, UNK
     Route: 042
  3. VELETRI [Suspect]
     Active Substance: EPOPROSTENOL
     Dosage: 19 NG/KG, PER MIN
     Route: 042
  4. VELETRI [Suspect]
     Active Substance: EPOPROSTENOL
     Dosage: 25.6 NG/KG, PER MIN
     Route: 042
  5. DILTIAZEM. [Concomitant]
     Active Substance: DILTIAZEM
  6. TAMIFLU [Concomitant]
     Active Substance: OSELTAMIVIR PHOSPHATE
     Indication: PROPHYLAXIS
  7. VELETRI [Suspect]
     Active Substance: EPOPROSTENOL
     Dosage: 12.87 NG/KG, UNK
     Route: 042
  8. VELETRI [Suspect]
     Active Substance: EPOPROSTENOL
     Dosage: 27.96 NG/KG, PER MIN
     Route: 042
  9. COUMADIN [Concomitant]
     Active Substance: WARFARIN SODIUM
  10. LETAIRIS [Concomitant]
     Active Substance: AMBRISENTAN
  11. ADEMPAS [Concomitant]
     Active Substance: RIOCIGUAT
     Dosage: UNK
     Dates: start: 20170922
  12. ADEMPAS [Concomitant]
     Active Substance: RIOCIGUAT
     Dosage: 1.5 MG, TID
     Dates: start: 20171108
  13. VELETRI [Suspect]
     Active Substance: EPOPROSTENOL
     Dosage: 26.04 NG/KG, PER MIN
     Route: 042
  14. VELETRI [Suspect]
     Active Substance: EPOPROSTENOL
     Indication: PULMONARY ARTERIAL HYPERTENSION
     Dosage: 24.89 NG/KG, PER MIN
     Route: 042

REACTIONS (34)
  - Catheter site discharge [Unknown]
  - Pain in jaw [Not Recovered/Not Resolved]
  - Nasopharyngitis [Unknown]
  - Palpitations [Not Recovered/Not Resolved]
  - Musculoskeletal pain [Unknown]
  - Fibromyalgia [Unknown]
  - Skin abrasion [Unknown]
  - Ear infection [Unknown]
  - Pain in extremity [Not Recovered/Not Resolved]
  - Device related infection [Unknown]
  - Nausea [Unknown]
  - Gastrooesophageal reflux disease [Unknown]
  - Dyspnoea at rest [Unknown]
  - Bronchitis [Unknown]
  - Abdominal pain [Not Recovered/Not Resolved]
  - Arthralgia [Unknown]
  - Flushing [Unknown]
  - Muscle spasms [Unknown]
  - Chest discomfort [Not Recovered/Not Resolved]
  - Pyrexia [Unknown]
  - Catheter site vesicles [Unknown]
  - Malaise [Unknown]
  - Catheter site erythema [Unknown]
  - Feeling hot [Unknown]
  - Headache [Unknown]
  - Diarrhoea [Unknown]
  - Pain [Unknown]
  - Vomiting [Unknown]
  - Sinusitis [Unknown]
  - Vertigo [Unknown]
  - Catheter site dermatitis [Unknown]
  - Tooth disorder [Recovering/Resolving]
  - Dyspnoea exertional [Not Recovered/Not Resolved]
  - Catheter management [Unknown]

NARRATIVE: CASE EVENT DATE: 201706
